FAERS Safety Report 22892396 (Version 3)
Quarter: 2023Q4

REPORT INFORMATION
  Report Type: Spontaneous
  Country: US (occurrence: US)
  Receive Date: 20230901
  Receipt Date: 20231030
  Transmission Date: 20240109
  Serious: Yes (Other)
  Sender: FDA-Public Use
  Company Number: US-JNJFOC-20230862968

PATIENT
  Age: 2 Year
  Sex: Male

DRUGS (7)
  1. TYLENOL REGULAR STRENGTH [Suspect]
     Active Substance: ACETAMINOPHEN
     Indication: Headache
     Dosage: ACCORDING TO PACKAGE INSTRUCTIONS, 1-3 TIMES WEEKLY
     Route: 064
     Dates: start: 201904, end: 202001
  2. TYLENOL REGULAR STRENGTH [Suspect]
     Active Substance: ACETAMINOPHEN
     Indication: Back pain
  3. TYLENOL EXTRA STRENGTH [Suspect]
     Active Substance: ACETAMINOPHEN
     Indication: Headache
     Dosage: ACCORDING TO PACKAGE INSTRUCTIONS, 1-3 TIMES WEEKLY
     Route: 064
     Dates: start: 201904, end: 202001
  4. TYLENOL EXTRA STRENGTH [Suspect]
     Active Substance: ACETAMINOPHEN
     Indication: Back pain
  5. TYLENOL [Suspect]
     Active Substance: ACETAMINOPHEN
     Indication: Headache
     Route: 064
     Dates: start: 201904, end: 202001
  6. TYLENOL [Suspect]
     Active Substance: ACETAMINOPHEN
     Indication: Back pain
  7. IRON [Concomitant]
     Active Substance: IRON
     Indication: Blood iron decreased
     Route: 064
     Dates: start: 201904, end: 202001

REACTIONS (2)
  - Autism spectrum disorder [Unknown]
  - Foetal exposure during pregnancy [Unknown]

NARRATIVE: CASE EVENT DATE: 20220901
